FAERS Safety Report 9159402 (Version 2)
Quarter: 2014Q2

REPORT INFORMATION
  Report Type: Report from Study
  Country: FR (occurrence: FR)
  Receive Date: 20130313
  Receipt Date: 20140506
  Transmission Date: 20141212
  Serious: Yes (Hospitalization)
  Sender: FDA-Public Use
  Company Number: PHHY2013FR023750

PATIENT
  Age: 60 Year
  Sex: Female
  Weight: 50 kg

DRUGS (12)
  1. ACLASTA [Suspect]
     Indication: OSTEOPOROSIS
     Dosage: UNK UKN, UNK
     Route: 042
     Dates: start: 20111214
  2. DEPAMIDE [Concomitant]
     Dosage: UNK UKN, UNK
     Dates: start: 2000, end: 201301
  3. METOJECT [Concomitant]
     Dosage: UNK UKN, UNK
     Dates: start: 2011
  4. CORTISONE [Concomitant]
     Dosage: UNK UKN, UNK
     Dates: start: 2008
  5. FOLIC ACID [Concomitant]
     Dosage: UNK UKN, UNK
     Dates: start: 2011
  6. CYMBALTA [Concomitant]
     Dosage: UNK UKN, UNK
     Dates: start: 2011, end: 2012
  7. LYSANXIA [Concomitant]
     Dosage: UNK UKN, UNK
     Dates: start: 2002
  8. DEPAKOTE [Concomitant]
     Dosage: UNK UKN, UNK
  9. ZYPREXA [Concomitant]
     Dosage: UNK UKN, UNK
  10. STILNOX [Concomitant]
     Dosage: UNK UKN, UNK
  11. APROVEL [Concomitant]
     Dosage: UNK UKN, UNK
  12. IXPRIM [Concomitant]
     Dosage: UNK UKN, UNK

REACTIONS (2)
  - Bipolar disorder [Unknown]
  - Loose tooth [Recovered/Resolved]
